FAERS Safety Report 21929149 (Version 1)
Quarter: 2023Q1

REPORT INFORMATION
  Report Type: Report from Study
  Country: US (occurrence: US)
  Receive Date: 20230131
  Receipt Date: 20230131
  Transmission Date: 20230418
  Serious: Yes (Death, Other)
  Sender: FDA-Public Use
  Company Number: US-ABBVIE-4288754

PATIENT
  Age: 70 Year
  Sex: Female

DRUGS (8)
  1. RINVOQ [Suspect]
     Active Substance: UPADACITINIB
     Indication: Colitis ulcerative
     Route: 048
  2. ESTRADIOL 2 Milligram [Concomitant]
     Indication: Product used for unknown indication
     Route: 048
  3. BUSPIRONE HC 5 Milligram [Concomitant]
     Indication: Product used for unknown indication
     Route: 048
  4. OXYBUTYNIN C TB2 15 Milligram [Concomitant]
     Indication: Product used for unknown indication
  5. FLUOXETINE H 20 Milligram [Concomitant]
     Indication: Product used for unknown indication
     Route: 048
  6. LAMOTRIGINE TBD 200 Milligram [Concomitant]
     Indication: Product used for unknown indication
  7. ARIPIPRAZOLE 20 Milligram [Concomitant]
     Indication: Product used for unknown indication
     Route: 048
  8. PREDNISONE 5 Milligram [Concomitant]
     Indication: Product used for unknown indication
     Route: 048

REACTIONS (1)
  - Death [Fatal]

NARRATIVE: CASE EVENT DATE: 20230104
